FAERS Safety Report 5442388-9 (Version None)
Quarter: 2007Q3

REPORT INFORMATION
  Report Type: 
  Country: None (occurrence: None)
  Receive Date: 20070904
  Receipt Date: 20070823
  Transmission Date: 20080115
  Serious: Yes (Life-Threatening)
  Sender: FDA-Public Use
  Company Number: JP-PFIZER INC-2007066171

PATIENT
  Sex: Female

DRUGS (3)
  1. AZULFIDINE EN-TABS [Suspect]
     Indication: RHEUMATOID ARTHRITIS
     Route: 048
     Dates: start: 20070614, end: 20070718
  2. SHIOSOL [Suspect]
     Indication: RHEUMATOID ARTHRITIS
     Dosage: DAILY DOSE:25MG
     Route: 030
     Dates: start: 20031002, end: 20070712
  3. FLOMOX [Suspect]
     Indication: CYSTITIS
     Dosage: TEXT:3 TABLETS
     Route: 048
     Dates: start: 20070712, end: 20070715

REACTIONS (1)
  - TOXIC SKIN ERUPTION [None]
